FAERS Safety Report 7834162-0 (Version None)
Quarter: 2011Q4

REPORT INFORMATION
  Report Type: 
  Country: None (occurrence: None)
  Receive Date: 20111024
  Receipt Date: 20111016
  Transmission Date: 20120403
  Serious: Yes (Other)
  Sender: FDA-Public Use
  Company Number: PHHY2011BR92366

PATIENT
  Sex: Female

DRUGS (1)
  1. EXFORGE [Suspect]
     Dosage: UNK DF, UNK

REACTIONS (6)
  - DIZZINESS [None]
  - DYSPNOEA [None]
  - DIABETES MELLITUS [None]
  - ASTHMA [None]
  - BLOOD PRESSURE INCREASED [None]
  - OSTEOPOROSIS [None]
